FAERS Safety Report 18239150 (Version 4)
Quarter: 2023Q1

REPORT INFORMATION
  Report Type: Spontaneous
  Country: DE (occurrence: DE)
  Receive Date: 20200907
  Receipt Date: 20230210
  Transmission Date: 20230417
  Serious: No
  Sender: FDA-Public Use
  Company Number: NVSC2020DE160836

PATIENT
  Age: 55 Year
  Sex: Female
  Weight: 55 kg

DRUGS (3)
  1. METHYLPREDNISOLONE [Suspect]
     Active Substance: METHYLPREDNISOLONE
     Indication: Multiple sclerosis relapse
     Dosage: 1000 MG,QD (ADMINISTRATED FROM 22 APR 2019 TO 30 APR 2019)
     Route: 042
     Dates: start: 20190422, end: 20190430
  2. CLADRIBINE [Suspect]
     Active Substance: CLADRIBINE
     Indication: Relapsing-remitting multiple sclerosis
     Dosage: FIRST WEEK THERAPY: TOOK 10 MG ON 10 APR 2019 AND 14 APR 2019
     Route: 048
     Dates: start: 20190410, end: 20190414
  3. CLADRIBINE [Suspect]
     Active Substance: CLADRIBINE
     Dosage: UNK (SECOND WEEK THERAPY: 10 MG ON FIRST AND LAST DAY)
     Route: 048

REACTIONS (1)
  - Hepatic enzyme increased [Recovered/Resolved]

NARRATIVE: CASE EVENT DATE: 20190607
